FAERS Safety Report 5937749-5 (Version None)
Quarter: 2008Q4

REPORT INFORMATION
  Report Type: 
  Country: None (occurrence: None)
  Receive Date: 20081031
  Receipt Date: 20081023
  Transmission Date: 20090506
  Serious: Yes (Death)
  Sender: FDA-Public Use
  Company Number: US-GENENTECH-270476

PATIENT
  Age: 68 Year
  Sex: Male
  Weight: 100.2 kg

DRUGS (13)
  1. BLINDED BEVACIZUMAB [Suspect]
     Indication: PROSTATE CANCER
     Dosage: 15 MG/KG, Q21D
     Route: 042
     Dates: start: 20071115, end: 20080904
  2. BLINDED PLACEBO [Suspect]
     Indication: PROSTATE CANCER
     Dosage: 15 MG/KG, Q21D
     Route: 042
     Dates: start: 20071115, end: 20080904
  3. DEXAMETHASONE [Concomitant]
     Indication: PROSTATE CANCER
     Dosage: 8 MG, Q21D
     Route: 048
     Dates: start: 20071115, end: 20080904
  4. DOCETAXEL [Concomitant]
     Indication: PROSTATE CANCER
     Dosage: 75 MG/M2, Q21D
     Route: 042
     Dates: start: 20071115, end: 20080904
  5. PREDNISONE [Concomitant]
     Indication: PROSTATE CANCER
     Dosage: 5 MG, BID
     Route: 048
     Dates: start: 20071115, end: 20080904
  6. GABAPENTIN [Concomitant]
     Indication: DRUG USE FOR UNKNOWN INDICATION
  7. LIDOCAINE [Concomitant]
     Indication: DRUG USE FOR UNKNOWN INDICATION
  8. MAGIC MOUTH WASH (INGREDIENTS UNK) [Concomitant]
     Indication: DRUG USE FOR UNKNOWN INDICATION
  9. NYSTATIN [Concomitant]
     Indication: DRUG USE FOR UNKNOWN INDICATION
  10. OXYCODONE HCL [Concomitant]
     Indication: DRUG USE FOR UNKNOWN INDICATION
  11. PROCHLORPERAZINE MALEATE [Concomitant]
     Indication: DRUG USE FOR UNKNOWN INDICATION
  12. SENNA [Concomitant]
     Indication: DRUG USE FOR UNKNOWN INDICATION
  13. CONCOMITANT DRUG [Concomitant]

REACTIONS (7)
  - CONDITION AGGRAVATED [None]
  - DEATH [None]
  - FATIGUE [None]
  - OEDEMA PERIPHERAL [None]
  - PAIN [None]
  - PARAESTHESIA [None]
  - SLEEP APNOEA SYNDROME [None]
